FAERS Safety Report 23080479 (Version 6)
Quarter: 2024Q2

REPORT INFORMATION
  Report Type: Spontaneous
  Country: JP (occurrence: None)
  Receive Date: 20231018
  Receipt Date: 20240501
  Transmission Date: 20240716
  Serious: Yes (Disabling, Other)
  Sender: FDA-Public Use
  Company Number: 2023A233528

PATIENT
  Age: 66 Year
  Sex: Female
  Weight: 45 kg

DRUGS (17)
  1. ONDEXXYA [Suspect]
     Active Substance: ANDEXANET ALFA
     Indication: Haemorrhage
     Dosage: 1280.0MG UNKNOWN
     Route: 042
     Dates: start: 20230909, end: 20230909
  2. XARELTO [Concomitant]
     Active Substance: RIVAROXABAN
     Indication: Atrial fibrillation
  3. HEPARINOID [Concomitant]
  4. ANTITHROMBIN III HUMAN [Concomitant]
     Active Substance: ANTITHROMBIN III HUMAN
  5. NAFAMOSTAT [Concomitant]
     Active Substance: NAFAMOSTAT
  6. PROPOFOL [Concomitant]
     Active Substance: PROPOFOL
  7. FENTANYL [Concomitant]
     Active Substance: FENTANYL\FENTANYL CITRATE
  8. DOBUTAMINE [Concomitant]
     Active Substance: DOBUTAMINE HYDROCHLORIDE
  9. NICARDIPINE HYDROCHLORIDE [Concomitant]
     Active Substance: NICARDIPINE HYDROCHLORIDE
  10. SIVELESTAT SODIUM [Concomitant]
     Active Substance: SIVELESTAT SODIUM
  11. TEICOPLANIN [Concomitant]
     Active Substance: TEICOPLANIN
  12. CEFAZOLIN SODIUM [Concomitant]
     Active Substance: CEFAZOLIN SODIUM
  13. BISOPROLOL [Concomitant]
     Active Substance: BISOPROLOL\BISOPROLOL FUMARATE
  14. LANSOPRAZOLE [Concomitant]
     Active Substance: LANSOPRAZOLE
  15. PYRIDOXAL [Concomitant]
     Active Substance: PYRIDOXAL
  16. RISPERIDONE [Concomitant]
     Active Substance: RISPERIDONE
  17. SEROQUEL [Concomitant]
     Active Substance: QUETIAPINE FUMARATE

REACTIONS (2)
  - Heparin resistance [Recovering/Resolving]
  - End stage renal disease [Recovering/Resolving]

NARRATIVE: CASE EVENT DATE: 20230909
